FAERS Safety Report 10537251 (Version 3)
Quarter: 2015Q1

REPORT INFORMATION
  Report Type: Report from Study
  Country: MX (occurrence: MX)
  Receive Date: 20141023
  Receipt Date: 20150202
  Transmission Date: 20150720
  Serious: Yes (Death, Life-Threatening, Hospitalization, Other)
  Sender: FDA-Public Use
  Company Number: MX-ACTELION-A-CH2014-106182

PATIENT
  Age: 28 Year
  Sex: Female
  Weight: 52 kg

DRUGS (10)
  1. ACENOCOUMAROL [Concomitant]
     Active Substance: ACENOCOUMAROL
     Dosage: UNK
     Dates: start: 20091231
  2. MYCOPHENOLATE [Concomitant]
     Active Substance: MYCOPHENOLIC ACID
     Dosage: UNK
     Dates: start: 20081217
  3. SPIRONOLACTONE. [Concomitant]
     Active Substance: SPIRONOLACTONE
     Dosage: UNK
     Dates: start: 20140416
  4. SILDENAFIL. [Concomitant]
     Active Substance: SILDENAFIL
     Dosage: UNK
     Dates: start: 20120322
  5. DIGOXINE [Concomitant]
     Active Substance: DIGOXIN
     Dosage: UNK
     Dates: start: 20120322
  6. FUROSEMIDE. [Concomitant]
     Active Substance: FUROSEMIDE
     Dosage: UNK
     Dates: start: 20091210
  7. MACITENTAN [Suspect]
     Active Substance: MACITENTAN
     Indication: PULMONARY ARTERIAL HYPERTENSION
     Dosage: 10 MG, QD
     Route: 048
     Dates: start: 20091223, end: 20141014
  8. OMEPRAZOLE. [Concomitant]
     Active Substance: OMEPRAZOLE
     Dosage: UNK
     Dates: start: 20120524
  9. LEVOTHYROXINE [Concomitant]
     Active Substance: LEVOTHYROXINE
     Dosage: UNK
     Dates: start: 20120322
  10. PREDNISONE. [Concomitant]
     Active Substance: PREDNISONE
     Dosage: UNK
     Dates: start: 20120706

REACTIONS (15)
  - Diarrhoea [Recovered/Resolved]
  - Anticoagulation drug level increased [Unknown]
  - Chills [Recovered/Resolved]
  - Dyspnoea [Recovered/Resolved with Sequelae]
  - Anuria [Fatal]
  - Right ventricular failure [Recovered/Resolved with Sequelae]
  - Dehydration [Recovered/Resolved]
  - Escherichia test positive [Fatal]
  - Transfusion [Unknown]
  - Hypothermia [Recovered/Resolved]
  - Hypotension [Fatal]
  - Concomitant disease aggravated [Recovered/Resolved with Sequelae]
  - Cardiac arrest [Fatal]
  - Septic shock [Fatal]
  - Blood culture positive [Fatal]

NARRATIVE: CASE EVENT DATE: 20140921
